FAERS Safety Report 20163730 (Version 1)
Quarter: 2021Q4

REPORT INFORMATION
  Report Type: Spontaneous
  Country: US (occurrence: US)
  Receive Date: 20211209
  Receipt Date: 20211209
  Transmission Date: 20220303
  Serious: Yes (Other)
  Sender: FDA-Public Use
  Company Number: US-NOVOPROD-872396

PATIENT
  Sex: Female

DRUGS (1)
  1. TRESIBA [Suspect]
     Active Substance: INSULIN DEGLUDEC
     Indication: Type 1 diabetes mellitus
     Dosage: 17 IU, QD (EVERY NIGHT)
     Route: 058
     Dates: start: 202110, end: 20211128

REACTIONS (5)
  - Paraesthesia [Unknown]
  - Burning sensation [Unknown]
  - Pruritus [Unknown]
  - Rash [Unknown]
  - Peripheral swelling [Unknown]

NARRATIVE: CASE EVENT DATE: 20211001
